FAERS Safety Report 12855094 (Version 10)
Quarter: 2017Q4

REPORT INFORMATION
  Report Type: Report from Study
  Country: US (occurrence: US)
  Receive Date: 20161017
  Receipt Date: 20171207
  Transmission Date: 20180320
  Serious: Yes (Hospitalization, Other)
  Sender: FDA-Public Use
  Company Number: US-GILEAD-2016-0238653

PATIENT
  Age: 52 Year
  Sex: Female
  Weight: 68.27 kg

DRUGS (34)
  1. FERROUS SULFATE. [Concomitant]
     Active Substance: FERROUS SULFATE
  2. ATIVAN [Concomitant]
     Active Substance: LORAZEPAM
  3. OXYGEN. [Concomitant]
     Active Substance: OXYGEN
  4. ADVIL (MEFENAMIC ACID) [Concomitant]
     Active Substance: MEFENAMIC ACID
  5. MIRALAX [Concomitant]
     Active Substance: POLYETHYLENE GLYCOL 3350
  6. ADCIRCA [Concomitant]
     Active Substance: TADALAFIL
  7. POTASSIUM BICARBONATE. [Concomitant]
     Active Substance: POTASSIUM BICARBONATE
  8. AMBRISENTAN [Suspect]
     Active Substance: AMBRISENTAN
     Dosage: 5 MG, QD
     Route: 048
  9. TYVASO [Suspect]
     Active Substance: TREPROSTINIL
     Dosage: 18-72 UG, QID
     Route: 055
     Dates: start: 20141201
  10. PROCARDIA [Concomitant]
     Active Substance: NIFEDIPINE
  11. ELIQUIS [Concomitant]
     Active Substance: APIXABAN
  12. TESSALON [Concomitant]
     Active Substance: BENZONATATE
  13. VITAMIN D3 [Concomitant]
     Active Substance: CHOLECALCIFEROL
  14. PRILOSEC [Concomitant]
     Active Substance: OMEPRAZOLE MAGNESIUM
  15. OXYCODONE [Concomitant]
     Active Substance: OXYCODONE
  16. POTASSIUM CHLORIDE. [Concomitant]
     Active Substance: POTASSIUM CHLORIDE
  17. VITAMIN C [Concomitant]
     Active Substance: ASCORBIC ACID
  18. TYVASO [Suspect]
     Active Substance: TREPROSTINIL
     Indication: PULMONARY HYPERTENSION
     Dosage: 72 UG, QID
     Route: 055
     Dates: start: 20140708
  19. ORENITRAM [Suspect]
     Active Substance: TREPROSTINIL
     Indication: PRODUCT USED FOR UNKNOWN INDICATION
     Dosage: UNK
     Route: 065
  20. VENTOLIN HFA [Concomitant]
     Active Substance: ALBUTEROL SULFATE
  21. TORSEMIDE. [Concomitant]
     Active Substance: TORSEMIDE
  22. AMBRISENTAN [Suspect]
     Active Substance: AMBRISENTAN
     Indication: PULMONARY ARTERIAL HYPERTENSION
     Dosage: 10 MG, QD
     Route: 048
     Dates: start: 20141022, end: 201609
  23. VOLTAREN [Concomitant]
     Active Substance: DICLOFENAC SODIUM
  24. ZOFRAN [Concomitant]
     Active Substance: ONDANSETRON HYDROCHLORIDE
  25. AMBRISENTAN [Suspect]
     Active Substance: AMBRISENTAN
     Dosage: 10 MG, QD
     Route: 048
  26. BERAPROST SODIUM [Suspect]
     Active Substance: BERAPROST SODIUM
     Indication: PULMONARY ARTERIAL HYPERTENSION
     Dosage: 2 TAB, QID
     Route: 048
     Dates: start: 20141106
  27. ASPIRIN                            /00002701/ [Concomitant]
     Active Substance: ASPIRIN
  28. IBUPROFEN. [Concomitant]
     Active Substance: IBUPROFEN
  29. NIFEDIPINE. [Concomitant]
     Active Substance: NIFEDIPINE
  30. PANTOPRAZOLE [Concomitant]
     Active Substance: PANTOPRAZOLE
  31. AMBRISENTAN [Suspect]
     Active Substance: AMBRISENTAN
     Indication: SCLERODERMA
     Dosage: UNK
     Route: 048
     Dates: start: 201609
  32. VELETRI [Suspect]
     Active Substance: EPOPROSTENOL
     Indication: PRODUCT USED FOR UNKNOWN INDICATION
     Route: 065
  33. EPIPEN [Concomitant]
     Active Substance: EPINEPHRINE
  34. ALDACTONE [Concomitant]
     Active Substance: SPIRONOLACTONE

REACTIONS (21)
  - Pulmonary hypertension [Not Recovered/Not Resolved]
  - Urinary tract infection bacterial [Recovered/Resolved]
  - Dyspepsia [Unknown]
  - Epistaxis [Unknown]
  - Bacteriuria [Unknown]
  - Pericarditis [Recovered/Resolved]
  - Acute kidney injury [Recovered/Resolved]
  - Right ventricular failure [Recovered/Resolved]
  - Dyspnoea [Unknown]
  - Fluid overload [Recovered/Resolved]
  - Syncope [Unknown]
  - Insomnia [Not Recovered/Not Resolved]
  - Oedema peripheral [Recovered/Resolved]
  - Abdominal discomfort [Recovered/Resolved]
  - Brachiocephalic vein thrombosis [Recovered/Resolved]
  - Depression [Not Recovered/Not Resolved]
  - Non-cardiac chest pain [Recovered/Resolved]
  - Headache [Unknown]
  - Catheterisation cardiac [Unknown]
  - Malaise [Unknown]
  - Palpitations [Not Recovered/Not Resolved]

NARRATIVE: CASE EVENT DATE: 20160811
